FAERS Safety Report 9048468 (Version 1)
Quarter: 2013Q1

REPORT INFORMATION
  Report Type: Spontaneous
  Country: US (occurrence: None)
  Receive Date: 20130130
  Receipt Date: 20130130
  Transmission Date: 20140127
  Serious: Yes (Other)
  Sender: FDA-Public Use
  Company Number: None

PATIENT
  Age: 60 Year
  Sex: 0
  Weight: 158.9 kg

DRUGS (18)
  1. VERSED [Suspect]
     Indication: PREMEDICATION
     Route: 042
  2. VERSED [Suspect]
     Indication: IMPLANTABLE DEFIBRILLATOR INSERTION
     Route: 042
  3. FENTANYL [Suspect]
     Indication: PREMEDICATION
     Route: 042
  4. FENTANYL [Suspect]
     Indication: IMPLANTABLE DEFIBRILLATOR INSERTION
     Route: 042
  5. PLAVIX [Concomitant]
  6. XALATAN [Concomitant]
  7. ZYRTEC [Concomitant]
  8. NEURONTIN [Concomitant]
  9. ALPHAGAN [Concomitant]
  10. SYMLIN [Concomitant]
  11. HUMALOG [Concomitant]
  12. ALBUTEROL [Concomitant]
  13. COLACE [Concomitant]
  14. LANTUS [Concomitant]
  15. TORSEMIDE [Concomitant]
  16. ISOSORBIDE [Concomitant]
  17. MONO [Concomitant]
  18. ASA [Concomitant]

REACTIONS (4)
  - Dyspnoea [None]
  - Respiratory arrest [None]
  - Oxygen saturation decreased [None]
  - Fluid retention [None]
